FAERS Safety Report 15149078 (Version 1)
Quarter: 2018Q3

REPORT INFORMATION
  Report Type: Spontaneous
  Country: JP (occurrence: JP)
  Receive Date: 20180716
  Receipt Date: 20180716
  Transmission Date: 20181010
  Serious: Yes (Death, Hospitalization)
  Sender: FDA-Public Use
  Company Number: JP-PFIZER INC-199649878PHANOV

PATIENT
  Age: 69 Year
  Sex: Male

DRUGS (6)
  1. ETOPOSIDE. [Suspect]
     Active Substance: ETOPOSIDE
     Indication: SMALL CELL LUNG CANCER
     Dosage: 100 MG/M2, DAYS 1?3/CYCLIC
     Route: 042
     Dates: start: 199401, end: 199401
  2. ETOPOSIDE. [Suspect]
     Active Substance: ETOPOSIDE
     Dosage: 100 MG/M2, DAYS 1?3 CYCLIC
     Route: 042
     Dates: start: 199402, end: 199402
  3. CARBOPLATIN. [Suspect]
     Active Substance: CARBOPLATIN
     Dosage: 300 MG/M2, DAY 1/CYCLIC
     Route: 042
     Dates: start: 199402, end: 199402
  4. CARBOPLATIN. [Suspect]
     Active Substance: CARBOPLATIN
     Indication: SMALL CELL LUNG CANCER
     Dosage: 300 MG/M2, DAY 1/CYCLIC
     Route: 042
     Dates: start: 199401, end: 199401
  5. TOPOSAR [Suspect]
     Active Substance: ETOPOSIDE
     Indication: SMALL CELL LUNG CANCER
     Dosage: 50 MG/DAY
     Route: 048
     Dates: start: 199404
  6. ETOPOSIDE. [Suspect]
     Active Substance: ETOPOSIDE
     Dosage: 50 MG/DAY
     Dates: start: 199404

REACTIONS (2)
  - Pneumonitis [Fatal]
  - Angina pectoris [Recovered/Resolved]

NARRATIVE: CASE EVENT DATE: 199402
